FAERS Safety Report 5660403-4 (Version None)
Quarter: 2008Q1

REPORT INFORMATION
  Report Type: 
  Country: None (occurrence: None)
  Receive Date: 20080311
  Receipt Date: 20071019
  Transmission Date: 20080703
  Serious: No
  Sender: FDA-Public Use
  Company Number: US-BAYER-200713425BCC

PATIENT
  Age: 62 Year
  Sex: Female
  Weight: 91 kg

DRUGS (8)
  1. ALEVE [Suspect]
     Indication: SCIATICA
     Dosage: TOTAL DAILY DOSE: 1320 MG  UNIT DOSE: 220 MG
     Route: 048
     Dates: start: 20070901
  2. EVISTA [Concomitant]
  3. TRIAMTERENE [Concomitant]
  4. LEVOXYL [Concomitant]
  5. CALCIUM [Concomitant]
  6. MAGNESIUM [Concomitant]
  7. ZINC [Concomitant]
  8. WALMART SPRINGTIME MULTIVITAMIN [Concomitant]

REACTIONS (1)
  - STOMACH DISCOMFORT [None]
